FAERS Safety Report 9627175 (Version 1)
Quarter: 2013Q4

REPORT INFORMATION
  Report Type: Spontaneous
  Country: US (occurrence: US)
  Receive Date: 20131016
  Receipt Date: 20131016
  Transmission Date: 20140711
  Serious: No
  Sender: FDA-Public Use
  Company Number: US-TEVA-438204USA

PATIENT
  Age: 38 Year
  Sex: Female
  Weight: 108.96 kg

DRUGS (4)
  1. PARAGARD 380A [Suspect]
     Indication: CONTRACEPTION
     Route: 015
     Dates: start: 20130828
  2. LAMOTRIGINE [Concomitant]
     Indication: DEPRESSION
  3. CLONAZEPAM [Concomitant]
     Indication: ANXIETY
  4. SYMBICORT [Concomitant]
     Indication: ASTHMA

REACTIONS (6)
  - Menorrhagia [Recovered/Resolved]
  - Dry mouth [Not Recovered/Not Resolved]
  - Lip dry [Not Recovered/Not Resolved]
  - Chapped lips [Not Recovered/Not Resolved]
  - Gastroenteritis viral [Recovered/Resolved]
  - Gingivitis [Unknown]
